FAERS Safety Report 12802892 (Version 1)
Quarter: 2016Q4

REPORT INFORMATION
  Report Type: Spontaneous
  Country: US (occurrence: US)
  Receive Date: 20161001
  Receipt Date: 20161001
  Transmission Date: 20170207
  Serious: No
  Sender: FDA-Public Use
  Company Number: None

PATIENT
  Age: 89 Year
  Sex: Female

DRUGS (1)
  1. NINLARO [Suspect]
     Active Substance: IXAZOMIB
     Dosage: ?          OTHER FREQUENCY:ONCE WEEKLY;?
     Route: 048

REACTIONS (2)
  - Dyspnoea exertional [None]
  - Feeling abnormal [None]

NARRATIVE: CASE EVENT DATE: 20160930
